FAERS Safety Report 7536708-9 (Version None)
Quarter: 2011Q2

REPORT INFORMATION
  Report Type: 
  Country: None (occurrence: None)
  Receive Date: 20110609
  Receipt Date: 20110603
  Transmission Date: 20111010
  Serious: Yes (Hospitalization)
  Sender: FDA-Public Use
  Company Number: B0660082A

PATIENT
  Sex: Female
  Weight: 65 kg

DRUGS (8)
  1. TYKERB [Suspect]
     Dosage: 500MG PER DAY
     Route: 048
     Dates: start: 20100630, end: 20101212
  2. BIOFERMIN [Concomitant]
     Indication: PROPHYLAXIS
     Route: 048
     Dates: start: 20100526
  3. XELODA [Concomitant]
     Dosage: 300MG PER DAY
     Route: 048
     Dates: start: 20100630, end: 20100929
  4. TYKERB [Suspect]
     Indication: BREAST CANCER
     Dosage: 1250MG PER DAY
     Route: 048
     Dates: start: 20100526, end: 20100609
  5. CEPHARANTHIN [Concomitant]
     Indication: NEUTROPHIL COUNT DECREASED
     Route: 048
     Dates: start: 20081214, end: 20101212
  6. XELODA [Concomitant]
     Dosage: 600MG PER DAY
     Route: 048
     Dates: start: 20100602, end: 20100609
  7. XELODA [Concomitant]
     Dosage: 1200MG PER DAY
     Route: 048
     Dates: start: 20100526, end: 20100602
  8. XELODA [Concomitant]
     Dosage: 600MG PER DAY
     Route: 048
     Dates: start: 20101006, end: 20101212

REACTIONS (2)
  - DIARRHOEA [None]
  - DEHYDRATION [None]
